FAERS Safety Report 22520723 (Version 2)
Quarter: 2024Q2

REPORT INFORMATION
  Report Type: Spontaneous
  Country: US (occurrence: US)
  Receive Date: 20230605
  Receipt Date: 20240528
  Transmission Date: 20240716
  Serious: Yes (Hospitalization)
  Sender: FDA-Public Use
  Company Number: US-PFIZER INC-PV202300098247

PATIENT
  Age: 89 Year
  Sex: Male
  Weight: 68.9 kg

DRUGS (1)
  1. VYNDAMAX [Suspect]
     Active Substance: TAFAMIDIS
     Indication: Cardiac amyloidosis
     Dosage: ONE 61 MG CAPSULE ONCE DAILY
     Route: 048

REACTIONS (11)
  - Malaise [Unknown]
  - Dyspnoea exertional [Unknown]
  - White blood cell count increased [Unknown]
  - Leukocytosis [Unknown]
  - Pneumonia [Unknown]
  - Chest tube insertion [Unknown]
  - Dysphagia [Unknown]
  - Pleural effusion [Unknown]
  - Neutrophil count increased [Unknown]
  - Ejection fraction decreased [Unknown]
  - Left ventricular hypertrophy [Unknown]

NARRATIVE: CASE EVENT DATE: 20230904
